FAERS Safety Report 17642090 (Version 5)
Quarter: 2020Q3

REPORT INFORMATION
  Report Type: Report from Study
  Country: US (occurrence: US)
  Receive Date: 20200408
  Receipt Date: 20200730
  Transmission Date: 20201102
  Serious: Yes (Hospitalization, Other)
  Sender: FDA-Public Use
  Company Number: US-BIOVITRUM-2020US1481

PATIENT
  Sex: Female

DRUGS (1)
  1. KINERET [Suspect]
     Active Substance: ANAKINRA
     Indication: RHEUMATOID ARTHRITIS
     Route: 058
     Dates: start: 20200313

REACTIONS (8)
  - Cellulitis [Unknown]
  - Oropharyngeal pain [Unknown]
  - Injection site pruritus [Unknown]
  - Headache [Unknown]
  - Injection site pain [Unknown]
  - Injection site mass [Unknown]
  - Malaise [Recovered/Resolved]
  - Ear pain [Unknown]
